FAERS Safety Report 12913559 (Version 4)
Quarter: 2017Q1

REPORT INFORMATION
  Report Type: Report from Study
  Country: None (occurrence: JP)
  Receive Date: 20161104
  Receipt Date: 20170327
  Transmission Date: 20170428
  Serious: No
  Sender: FDA-Public Use
  Company Number: JP-ABBVIE-16K-087-1765120-00

PATIENT
  Age: 65 Year
  Sex: Male
  Weight: 73.7 kg

DRUGS (4)
  1. HUMIRA [Suspect]
     Active Substance: ADALIMUMAB
     Indication: PSORIATIC ARTHROPATHY
     Route: 058
     Dates: start: 20151027, end: 20151027
  2. HUMIRA [Suspect]
     Active Substance: ADALIMUMAB
     Route: 058
     Dates: start: 20151027, end: 20160107
  3. HUMIRA [Suspect]
     Active Substance: ADALIMUMAB
     Route: 058
     Dates: start: 20160218
  4. RHEUMATREX [Suspect]
     Active Substance: METHOTREXATE SODIUM
     Indication: PSORIATIC ARTHROPATHY
     Route: 048
     Dates: end: 20160120

REACTIONS (2)
  - Transaminases increased [Recovering/Resolving]
  - Cell marker increased [Recovering/Resolving]

NARRATIVE: CASE EVENT DATE: 20160121
